FAERS Safety Report 9815243 (Version 1)
Quarter: 2014Q1

REPORT INFORMATION
  Report Type: Spontaneous
  Country: US (occurrence: US)
  Receive Date: 20140114
  Receipt Date: 20140114
  Transmission Date: 20141002
  Serious: No
  Sender: FDA-Public Use
  Company Number: US-009507513-1312USA009264

PATIENT
  Age: 23 Year
  Sex: Female
  Weight: 77.98 kg

DRUGS (2)
  1. NUVARING [Suspect]
     Dosage: UNK
     Dates: start: 201311
  2. NUVARING [Suspect]
     Dosage: UNK
     Dates: start: 20131209, end: 20131216

REACTIONS (2)
  - Nausea [Unknown]
  - Accidental overdose [Unknown]
